FAERS Safety Report 9827813 (Version 1)
Quarter: 2014Q1

REPORT INFORMATION
  Report Type: Spontaneous
  Country: GB (occurrence: GB)
  Receive Date: 20140117
  Receipt Date: 20140117
  Transmission Date: 20141002
  Serious: Yes (Hospitalization)
  Sender: FDA-Public Use
  Company Number: GB-BRISTOL-MYERS SQUIBB COMPANY-20029336

PATIENT
  Age: 6 Decade
  Sex: Male

DRUGS (1)
  1. FORXIGA [Suspect]

REACTIONS (1)
  - Malaise [Unknown]
